FAERS Safety Report 20715523 (Version 3)
Quarter: 2022Q2

REPORT INFORMATION
  Report Type: Spontaneous
  Country: US (occurrence: US)
  Receive Date: 20220415
  Receipt Date: 20220613
  Transmission Date: 20220721
  Serious: Yes (Other)
  Sender: FDA-Public Use
  Company Number: US-BoehringerIngelheim-2022-BI-165628

PATIENT
  Age: 64 Year
  Sex: Male
  Weight: 84.36 kg

DRUGS (2)
  1. SYNJARDY XR [Suspect]
     Active Substance: EMPAGLIFLOZIN\METFORMIN HYDROCHLORIDE
     Indication: Product used for unknown indication
     Dosage: 25/1000
     Route: 065
     Dates: start: 20220128, end: 20220429
  2. XIGDUO XR [Concomitant]
     Active Substance: DAPAGLIFLOZIN PROPANEDIOL\METFORMIN HYDROCHLORIDE
     Indication: Product used for unknown indication

REACTIONS (2)
  - B-cell lymphoma [Unknown]
  - Hepatic mass [Unknown]

NARRATIVE: CASE EVENT DATE: 20220403
